FAERS Safety Report 10182914 (Version 2)
Quarter: 2014Q2

REPORT INFORMATION
  Report Type: Spontaneous
  Country: US (occurrence: US)
  Receive Date: 20140520
  Receipt Date: 20140604
  Transmission Date: 20141212
  Serious: No
  Sender: FDA-Public Use
  Company Number: US-PFIZER INC-2014135283

PATIENT
  Age: 37 Year
  Sex: Female
  Weight: 58.96 kg

DRUGS (3)
  1. LYRICA [Suspect]
     Indication: BACK DISORDER
     Dosage: 100 MG, 3X/DAY
     Route: 048
     Dates: start: 2013
  2. LYRICA [Suspect]
     Indication: NEUROPATHY PERIPHERAL
  3. BACTRIM DS [Concomitant]
     Dosage: 800/160 MG, 2XDAY

REACTIONS (1)
  - Nasopharyngitis [Unknown]
